FAERS Safety Report 6697690-X (Version None)
Quarter: 2010Q2

REPORT INFORMATION
  Report Type: 
  Country: None (occurrence: None)
  Receive Date: 20100423
  Receipt Date: 20100412
  Transmission Date: 20101027
  Serious: Yes (Hospitalization)
  Sender: FDA-Public Use
  Company Number: 7001295

PATIENT
  Age: 47 Year
  Sex: Female

DRUGS (1)
  1. REBIF [Suspect]
     Indication: MULTIPLE SCLEROSIS
     Dosage: 44 MCG, 3 IN 1 WK, SUBCUTANEOUS
     Route: 058
     Dates: start: 20031114

REACTIONS (4)
  - INFLUENZA LIKE ILLNESS [None]
  - INJECTION SITE NECROSIS [None]
  - OPTIC NEURITIS [None]
  - TRIGEMINAL NEURALGIA [None]
